FAERS Safety Report 4935239-X (Version None)
Quarter: 2006Q1

REPORT INFORMATION
  Report Type: 
  Country: None (occurrence: None)
  Receive Date: 20060302
  Receipt Date: 20060220
  Transmission Date: 20060701
  Serious: Yes (Hospitalization, Other)
  Sender: FDA-Public Use
  Company Number: GXKR2006US00963

PATIENT
  Age: 57 Year
  Sex: Female

DRUGS (18)
  1. FUROSEMIDE [Suspect]
     Indication: CARDIAC FAILURE
     Dosage: 40 MG, BID, INTRAVENOUS
     Route: 042
  2. TORASEMIDE (NGX) (TORASEMIDE) [Suspect]
     Indication: CARDIAC FAILURE
     Dosage: INTRAVENOUS
     Route: 042
  3. BUMETANIDE [Suspect]
     Indication: OEDEMA PERIPHERAL
     Dosage: INTRAVENOUS
     Route: 042
  4. DIGOXIN [Concomitant]
  5. PANTOPRAZOLE SODIUM [Concomitant]
  6. LEVOTHYROXINE SODIUM [Concomitant]
  7. DOBUTAMINE (DOBUTAMINE) [Concomitant]
  8. FERROUS SULFATE TAB [Concomitant]
  9. ASCORBIC ACID [Concomitant]
  10. MAGNESIUM GLUCONATE (MAGNESIUM GLUCONATE) [Concomitant]
  11. DOCUSATE (DOCUSATE) [Concomitant]
  12. SPIRONOLACTONE [Concomitant]
  13. ERYTHROPOIETIN (ERYTHROPOIETIN) [Concomitant]
  14. VALSARTAN [Concomitant]
  15. ESTROGENIC SUB CAP [Concomitant]
  16. ISOSORBIDE (ISOSORBIDE) [Concomitant]
  17. ETACRYNIC ACID (ETACRYNIC ACID) [Concomitant]
  18. METOLAZONE [Concomitant]

REACTIONS (10)
  - BLOOD UREA INCREASED [None]
  - CARDIAC FAILURE [None]
  - CONDITION AGGRAVATED [None]
  - DISEASE RECURRENCE [None]
  - DRUG ADMINISTRATION ERROR [None]
  - FLUID OVERLOAD [None]
  - MYALGIA [None]
  - OEDEMA PERIPHERAL [None]
  - PANCREATITIS [None]
  - PULMONARY OEDEMA [None]
